FAERS Safety Report 18462871 (Version 1)
Quarter: 2020Q4

REPORT INFORMATION
  Report Type: Spontaneous
  Country: NL (occurrence: NL)
  Receive Date: 20201104
  Receipt Date: 20201104
  Transmission Date: 20210114
  Serious: Yes (Other)
  Sender: FDA-Public Use
  Company Number: NL-PORTOLA PHARMACEUTICALS, INC.-2020NL000216

PATIENT

DRUGS (2)
  1. ONDEXXYA [Suspect]
     Active Substance: ANDEXANET ALFA
     Dosage: UNK MG, SINGLE
     Route: 041
  2. ONDEXXYA [Suspect]
     Active Substance: ANDEXANET ALFA
     Indication: PROCOAGULANT THERAPY
     Dosage: UNK MG, SINGLE
     Route: 040

REACTIONS (2)
  - Device related thrombosis [Unknown]
  - Off label use [Unknown]
